FAERS Safety Report 10022073 (Version 1)
Quarter: 2014Q1

REPORT INFORMATION
  Report Type: Spontaneous
  Country: US (occurrence: US)
  Receive Date: 20140319
  Receipt Date: 20140319
  Transmission Date: 20141002
  Serious: No
  Sender: FDA-Public Use
  Company Number: US-009507513-1403USA000705

PATIENT
  Sex: Female

DRUGS (1)
  1. CLARITIN [Suspect]
     Indication: SINUSITIS
     Dosage: UNK, UNKNOWN
     Route: 048
     Dates: start: 2014

REACTIONS (2)
  - Headache [Unknown]
  - Off label use [Unknown]
